FAERS Safety Report 8282324 (Version 7)
Quarter: 2012Q4

REPORT INFORMATION
  Report Type: 
  Country: US (occurrence: US)
  Receive Date: 20111209
  Receipt Date: 20120829
  Transmission Date: 20130627
  Serious: Yes (Hospitalization, Disabling, Other)
  Sender: FDA-Public Use
  Company Number: US-009507513-1112USA00791

PATIENT

DRUGS (4)
  1. FOSAMAX [Suspect]
     Indication: OSTEOPOROSIS
     Dosage: 70 mg, QW
     Route: 048
     Dates: start: 1997, end: 2008
  2. FOSAMAX [Suspect]
     Indication: OSTEOPENIA
     Dosage: 10 mg, UNK
     Route: 048
  3. FOSAMAX [Suspect]
     Dosage: 70 mg, QW
     Route: 048
     Dates: start: 20080228, end: 2009
  4. UNSPECIFIED INGREDIENT [Concomitant]
     Route: 048
     Dates: start: 1980

REACTIONS (54)
  - Femur fracture [Unknown]
  - Angina unstable [Recovered/Resolved]
  - Osteoporosis [Unknown]
  - Pneumonia [Unknown]
  - Malignant hypertension [Unknown]
  - Chest pain [Unknown]
  - Intervertebral disc disorder [Unknown]
  - Intervertebral disc displacement [Unknown]
  - Anxiety [Unknown]
  - Intervertebral disc protrusion [Unknown]
  - Exostosis [Unknown]
  - Fall [Recovering/Resolving]
  - Intervertebral disc degeneration [Unknown]
  - Lumbar spinal stenosis [Unknown]
  - Joint dislocation [Unknown]
  - Contusion [Unknown]
  - Ligament sprain [Recovering/Resolving]
  - Osteoarthritis [Unknown]
  - Laceration [Unknown]
  - Contusion [Unknown]
  - Laceration [Unknown]
  - Contusion [Unknown]
  - Upper respiratory tract infection [Unknown]
  - Bronchitis [Unknown]
  - Rotator cuff syndrome [Unknown]
  - Trigger finger [Unknown]
  - Fungal infection [Unknown]
  - Vertebral foraminal stenosis [Unknown]
  - Spondylolisthesis [Unknown]
  - Herpes zoster [Unknown]
  - Vulvovaginal pruritus [Recovering/Resolving]
  - Concussion [Unknown]
  - Ecchymosis [Unknown]
  - Meniscus injury [Unknown]
  - Muscle strain [Unknown]
  - Malaise [Unknown]
  - Muscle strain [Unknown]
  - Haematoma [Recovering/Resolving]
  - Bursitis [Unknown]
  - Sciatica [Unknown]
  - Blood pressure increased [Unknown]
  - Synovial cyst [Unknown]
  - Muscle strain [Unknown]
  - Eczema asteatotic [Unknown]
  - Spinal column stenosis [Unknown]
  - Keratoconus [Unknown]
  - Urinary tract infection [Unknown]
  - Carpal tunnel syndrome [Unknown]
  - Back pain [Unknown]
  - Arthralgia [Recovering/Resolving]
  - Musculoskeletal chest pain [Unknown]
  - Pain in extremity [Recovered/Resolved]
  - Arthralgia [Unknown]
  - Rash [Unknown]
